APPROVED DRUG PRODUCT: MELPHALAN HYDROCHLORIDE
Active Ingredient: MELPHALAN HYDROCHLORIDE
Strength: EQ 50MG BASE/VIAL
Dosage Form/Route: POWDER;INTRAVENOUS
Application: A209323 | Product #001
Applicant: ACTAVIS LLC
Approved: Mar 6, 2020 | RLD: No | RS: No | Type: DISCN